FAERS Safety Report 5132112-1 (Version None)
Quarter: 2006Q4

REPORT INFORMATION
  Report Type: 
  Country: None (occurrence: None)
  Receive Date: 20061017
  Receipt Date: 20061004
  Transmission Date: 20070319
  Serious: Yes (Death, Life-Threatening, Hospitalization)
  Sender: FDA-Public Use
  Company Number: 2006BI014270

PATIENT
  Age: 86 Year
  Sex: Female
  Weight: 55.7924 kg

DRUGS (9)
  1. ZEVALIN [Suspect]
     Indication: NON-HODGKIN'S LYMPHOMA
     Dosage: 4.88 ML; 1X; IV
     Route: 042
     Dates: start: 20050913, end: 20050913
  2. ZEVALIN [Suspect]
     Indication: NON-HODGKIN'S LYMPHOMA
     Dosage: 23.8 ML; 1X; IV
     Route: 042
     Dates: start: 20050921, end: 20050921
  3. RITUXIMAB [Concomitant]
  4. RITUXIMAB [Concomitant]
  5. LISINOPRIL [Concomitant]
  6. DIPHENHYDRAMINE HCL [Concomitant]
  7. DIPHENHYDRAMINE HCL [Concomitant]
  8. ACETAMINOPHEN [Concomitant]
  9. ACETAMINOPHEN [Concomitant]

REACTIONS (1)
  - ACUTE MYELOID LEUKAEMIA [None]
